FAERS Safety Report 9399942 (Version 2)
Quarter: 2013Q3

REPORT INFORMATION
  Report Type: Spontaneous
  Country: GB (occurrence: GB)
  Receive Date: 20130715
  Receipt Date: 20130819
  Transmission Date: 20140515
  Serious: Yes (Other)
  Sender: FDA-Public Use
  Company Number: GB-JNJFOC-20130705042

PATIENT
  Sex: Male

DRUGS (1)
  1. STELARA [Suspect]
     Indication: PSORIASIS
     Route: 058

REACTIONS (4)
  - Blood cholesterol increased [Unknown]
  - Blood triglycerides increased [Unknown]
  - Ceruloplasmin decreased [Unknown]
  - Psoriasis [Unknown]
